FAERS Safety Report 7303686-7 (Version None)
Quarter: 2011Q1

REPORT INFORMATION
  Report Type: 
  Country: None (occurrence: None)
  Receive Date: 20110221
  Receipt Date: 20110215
  Transmission Date: 20110831
  Serious: Yes (Hospitalization)
  Sender: FDA-Public Use
  Company Number: AU-ROCHE-685172

PATIENT
  Sex: Male
  Weight: 87.6 kg

DRUGS (23)
  1. OXALIPLATIN [Suspect]
     Indication: RECTAL CANCER
     Dosage: LAST DOSE PRIOR TO SAE ON 10 FEB 2010.
     Route: 042
     Dates: start: 20100604
  2. OXYCONTIN [Concomitant]
     Indication: PAIN
     Route: 048
     Dates: start: 20100128
  3. URAL [Concomitant]
     Route: 048
     Dates: start: 20100211, end: 20100216
  4. LOPERAMIDE [Concomitant]
     Route: 048
     Dates: start: 20100211
  5. LOPERAMIDE [Concomitant]
     Route: 048
     Dates: end: 20100621
  6. OXYCONTIN [Concomitant]
     Route: 048
     Dates: start: 20100210, end: 20100216
  7. ENDONE [Concomitant]
     Route: 048
     Dates: start: 20100129
  8. NITRAZEPAM [Concomitant]
     Indication: INSOMNIA
     Route: 048
     Dates: end: 20100615
  9. ONDANSERTRON HCL [Concomitant]
     Dosage: 1 AS NECESSARY
     Route: 048
     Dates: start: 20100616, end: 20100618
  10. MAXOLON [Concomitant]
     Route: 048
     Dates: start: 20100615
  11. CAPECITABINE [Suspect]
     Indication: RECTAL CANCER
     Dosage: LAST DOSE PRIOR TO SAE ON 8 FEB 2010.
     Route: 048
     Dates: start: 20100104
  12. LOPERAMIDE [Concomitant]
     Indication: DIARRHOEA
     Route: 048
     Dates: start: 20100102
  13. PARACETAMOL [Concomitant]
     Indication: PAIN
     Route: 048
     Dates: start: 20100101
  14. PARACETAMOL [Concomitant]
     Route: 048
     Dates: start: 20100211, end: 20100216
  15. DEXAMETHASONE [Concomitant]
     Indication: NAUSEA
     Route: 048
     Dates: start: 20100105, end: 20100216
  16. ONDANSERTRON HCL [Concomitant]
     Dosage: IV STAT
     Route: 048
     Dates: start: 20100210
  17. LOPERAMIDE [Concomitant]
     Dosage: I6 STAT DOSES
     Route: 048
     Dates: start: 20100211, end: 20100215
  18. URAL [Concomitant]
     Indication: CYSTITIS
     Dosage: DOSE: 1 SACHET.
     Route: 048
     Dates: start: 20100129
  19. ENDONE [Concomitant]
     Dosage: STAT DOSE
     Route: 048
     Dates: start: 20100213, end: 20100213
  20. MAXOLON [Concomitant]
     Indication: NAUSEA
     Dosage: FREQUENCY: PRN
     Route: 048
  21. ONDANSERTRON HCL [Concomitant]
     Dosage: DOSE: ORAL
     Route: 048
     Dates: start: 20100210, end: 20100212
  22. OLANZAPINE [Concomitant]
     Indication: ANTIDEPRESSANT THERAPY
     Dosage: FREQUENCY: PRN
     Route: 048
  23. ONDANSERTRON HCL [Concomitant]
     Indication: NAUSEA
     Route: 048
     Dates: start: 20100105

REACTIONS (5)
  - NAUSEA [None]
  - PROCEDURAL VOMITING [None]
  - DECREASED APPETITE [None]
  - DUODENAL PERFORATION [None]
  - POST PROCEDURAL DIARRHOEA [None]
